FAERS Safety Report 5909985-5 (Version None)
Quarter: 2008Q4

REPORT INFORMATION
  Report Type: 
  Country: None (occurrence: None)
  Receive Date: 20081006
  Receipt Date: 20081006
  Transmission Date: 20090506
  Serious: No
  Sender: FDA-Public Use
  Company Number: None

PATIENT
  Sex: Female
  Weight: 90.7194 kg

DRUGS (1)
  1. VYTORIN [Suspect]
     Indication: BLOOD CHOLESTEROL
     Dosage: ONCE DAILY PO
     Route: 048
     Dates: start: 20080830, end: 20081004

REACTIONS (2)
  - DYSPHAGIA [None]
  - THROAT TIGHTNESS [None]
